FAERS Safety Report 21519751 (Version 3)
Quarter: 2023Q1

REPORT INFORMATION
  Report Type: Spontaneous
  Country: DE (occurrence: DE)
  Receive Date: 20221028
  Receipt Date: 20230112
  Transmission Date: 20230418
  Serious: Yes (Other)
  Sender: FDA-Public Use
  Company Number: DE-CELLTRION INC.-2022DE017518

PATIENT

DRUGS (11)
  1. RITUXIMAB [Suspect]
     Active Substance: RITUXIMAB
     Indication: Epstein Barr virus positive mucocutaneous ulcer
     Dosage: 3 CYCLES OF R-CHOP REGIMEN
     Route: 065
  2. RITUXIMAB [Suspect]
     Active Substance: RITUXIMAB
     Dosage: 750 MG/M2, Q3W FOR 8 CYCLES
     Route: 065
  3. RITUXIMAB [Suspect]
     Active Substance: RITUXIMAB
     Dosage: UNK, CYCLIC (3 CYCLES OF R-CHOP REGIMEN)
  4. PREDNISONE [Concomitant]
     Active Substance: PREDNISONE
     Indication: Epstein Barr virus positive mucocutaneous ulcer
     Dosage: 3 CYCLES OF R-CHOP REGIMEN
     Route: 065
  5. PREDNISONE [Concomitant]
     Active Substance: PREDNISONE
     Dosage: UNK, CYCLIC (3 CYCLES OF R-CHOP REGIMEN)
     Route: 065
  6. VINCRISTINE [Concomitant]
     Active Substance: VINCRISTINE
     Indication: Epstein Barr virus positive mucocutaneous ulcer
     Dosage: 3 CYCLES OF R-CHOP REGIMEN
     Route: 065
  7. VINCRISTINE [Concomitant]
     Active Substance: VINCRISTINE
     Dosage: UNK UNK, CYCLIC (3 CYCLES OF R-CHOP REGIMEN)
  8. DOXORUBICIN [Concomitant]
     Active Substance: DOXORUBICIN
     Indication: Epstein Barr virus positive mucocutaneous ulcer
     Dosage: 3 CYCLES OF R-CHOP REGIMEN
     Route: 065
  9. DOXORUBICIN [Concomitant]
     Active Substance: DOXORUBICIN
     Dosage: UNK, CYCLIC (3 CYCLES OF R-CHOP REGIMEN)
  10. CYCLOPHOSPHAMIDE [Concomitant]
     Active Substance: CYCLOPHOSPHAMIDE
     Indication: Epstein Barr virus positive mucocutaneous ulcer
     Dosage: 3 CYCLES OF R-CHOP REGIMEN
     Route: 065
  11. CYCLOPHOSPHAMIDE [Concomitant]
     Active Substance: CYCLOPHOSPHAMIDE
     Dosage: UNK, CYCLIC (3 CYCLES OF R-CHOP REGIMEN)

REACTIONS (3)
  - Hodgkin^s disease stage III [Unknown]
  - Drug ineffective for unapproved indication [Unknown]
  - Off label use [Unknown]
